FAERS Safety Report 9698711 (Version 1)
Quarter: 2013Q4

REPORT INFORMATION
  Report Type: Spontaneous
  Country: GB (occurrence: None)
  Receive Date: 20131118
  Receipt Date: 20131118
  Transmission Date: 20140711
  Serious: Yes (Other)
  Sender: FDA-Public Use
  Company Number: SYM-2013-12572

PATIENT
  Age: 65 Year
  Sex: Female

DRUGS (2)
  1. FLUOROURACIL [Suspect]
     Indication: COLORECTAL CANCER
     Route: 042
  2. LEUCOVORIN [Suspect]
     Indication: COLORECTAL CANCER

REACTIONS (1)
  - Neutropenia [None]
